FAERS Safety Report 4579118-9 (Version None)
Quarter: 2005Q1

REPORT INFORMATION
  Report Type: 
  Country: None (occurrence: None)
  Receive Date: 20050121
  Receipt Date: 20031223
  Transmission Date: 20050727
  Serious: Yes (Hospitalization)
  Sender: FDA-Public Use
  Company Number: STA-AE-03-MTX-212

PATIENT
  Age: 75 Year
  Sex: Male

DRUGS (10)
  1. METHOTREXATE [Suspect]
     Indication: RHEUMATOID ARTHRITIS
     Dosage: 17.5 MG 1 PER 1WK, ORAL
     Route: 048
     Dates: start: 20020401
  2. IMURAN [Suspect]
     Dosage: 50 MG 2X PER 1 DAY
     Dates: start: 19900101
  3. PLAQUENIL [Suspect]
     Dosage: 20MG 2X PER 1 DAY, ORAL
     Route: 048
     Dates: start: 19990501
  4. PREDNISONE TAB [Suspect]
     Dosage: 2.5 MG 1X PER 1 DAY, ORAL
     Route: 048
  5. ATENOLOL [Concomitant]
  6. CELEBREX [Concomitant]
  7. ACETYLSALICYLIC ACID ENTERIC COATED (ACETYLSALICYLIC ACID) [Concomitant]
  8. ZOCOR [Concomitant]
  9. CALCIUM (CALCIUM) [Concomitant]
  10. FOLIC ACID [Concomitant]

REACTIONS (3)
  - CHEST PAIN [None]
  - PLEURAL EFFUSION [None]
  - PNEUMONIA [None]
